FAERS Safety Report 9687090 (Version 5)
Quarter: 2014Q2

REPORT INFORMATION
  Report Type: Report from Study
  Country: IT (occurrence: IT)
  Receive Date: 20131113
  Receipt Date: 20140421
  Transmission Date: 20141212
  Serious: Yes (Hospitalization, Other)
  Sender: FDA-Public Use
  Company Number: IT-ROCHE-1192172

PATIENT
  Age: 71 Year
  Sex: Female
  Weight: 69 kg

DRUGS (10)
  1. TRASTUZUMAB [Suspect]
     Indication: HER-2 POSITIVE BREAST CANCER
     Dosage: LAST DOSE PRIOR TRO SAE 24/JAN/2013
     Route: 042
     Dates: start: 20120607, end: 20120607
  2. TRASTUZUMAB [Suspect]
     Dosage: MAINTENANCE DOSE?LAST DOSE PRIOR TRO SAE 24/JAN/2013
     Route: 042
     Dates: end: 20130214
  3. TRASTUZUMAB [Suspect]
     Route: 042
     Dates: end: 20130307
  4. LORAZEPAM [Concomitant]
     Route: 065
     Dates: start: 201203
  5. DOMPERIDONE [Concomitant]
     Route: 065
     Dates: start: 20130124
  6. PANTOPRAZOL [Concomitant]
     Route: 065
     Dates: start: 20120621
  7. PANTOPRAZOL [Concomitant]
     Route: 065
     Dates: start: 20130409
  8. PERTUZUMAB [Suspect]
     Indication: HER-2 POSITIVE BREAST CANCER
     Dosage: LOADING DOSE
     Route: 042
     Dates: start: 20120607, end: 20120607
  9. PERTUZUMAB [Suspect]
     Dosage: MAINTENANCE DOSE?LAST DOSE PRIOR TRO SAE 24/JAN/2013
     Route: 042
     Dates: end: 20130214
  10. PERTUZUMAB [Suspect]
     Route: 042
     Dates: end: 20130307

REACTIONS (2)
  - Acute pulmonary oedema [Recovered/Resolved]
  - Cardiac failure [Recovered/Resolved]
